FAERS Safety Report 24435894 (Version 2)
Quarter: 2024Q4

REPORT INFORMATION
  Report Type: Spontaneous
  Country: SA (occurrence: SA)
  Receive Date: 20241015
  Receipt Date: 20241219
  Transmission Date: 20250114
  Serious: Yes (Other)
  Sender: ROCHE
  Company Number: SA-002147023-NVSC2024SA199833

PATIENT
  Age: 22 Year
  Sex: Female

DRUGS (1)
  1. XOLAIR [Suspect]
     Active Substance: OMALIZUMAB
     Indication: Chronic spontaneous urticaria
     Dosage: UNK
     Route: 065

REACTIONS (2)
  - Asphyxia [Unknown]
  - Chronic spontaneous urticaria [Not Recovered/Not Resolved]
